FAERS Safety Report 15481944 (Version 1)
Quarter: 2018Q4

REPORT INFORMATION
  Report Type: Other
  Country: FR (occurrence: FR)
  Receive Date: 20181010
  Receipt Date: 20181010
  Transmission Date: 20190205
  Serious: Yes (Other)
  Sender: FDA-Public Use
  Company Number: FR-ASTELLAS-2018US043330

PATIENT
  Age: 12 Year
  Sex: Female
  Weight: 33 kg

DRUGS (1)
  1. MODIGRAF [Suspect]
     Active Substance: TACROLIMUS
     Indication: NEPHROTIC SYNDROME
     Route: 048
     Dates: start: 201712

REACTIONS (4)
  - Aphasia [Recovered/Resolved]
  - Formication [Recovered/Resolved]
  - Headache [Not Recovered/Not Resolved]
  - Product use in unapproved indication [Unknown]

NARRATIVE: CASE EVENT DATE: 201805
